FAERS Safety Report 6914509-X (Version None)
Quarter: 2010Q3

REPORT INFORMATION
  Report Type: 
  Country: None (occurrence: None)
  Receive Date: 20100809
  Receipt Date: 20100730
  Transmission Date: 20110219
  Serious: Yes (Hospitalization)
  Sender: FDA-Public Use
  Company Number: Z0005118A

PATIENT
  Age: 60 Year
  Sex: Female

DRUGS (4)
  1. OFATUMUMAB [Suspect]
     Indication: LYMPHOMA
     Route: 042
     Dates: start: 20100722
  2. DEXAMETHASONE [Suspect]
     Indication: LYMPHOMA
     Dates: start: 20100722
  3. CISPLATIN [Suspect]
     Indication: LYMPHOMA
     Dosage: 100MGM2 CONTINUOUS
     Route: 042
     Dates: start: 20100722
  4. CYTARABINE [Suspect]
     Indication: LYMPHOMA
     Route: 042
     Dates: start: 20100722

REACTIONS (1)
  - TUMOUR LYSIS SYNDROME [None]
